FAERS Safety Report 4791319-3 (Version None)
Quarter: 2005Q4

REPORT INFORMATION
  Report Type: 
  Country: None (occurrence: None)
  Receive Date: 20051007
  Receipt Date: 20050927
  Transmission Date: 20060501
  Serious: Yes (Hospitalization)
  Sender: FDA-Public Use
  Company Number: ES-JNJFOC-20050904350

PATIENT
  Age: 76 Year
  Sex: Female
  Weight: 75 kg

DRUGS (5)
  1. REMICADE [Suspect]
     Indication: RHEUMATOID ARTHRITIS
     Dosage: TOTAL OF 6 INFUSIONS
     Route: 042
  2. ENALAPRIL [Concomitant]
  3. HYDROCHLOROTHIAZIDE [Concomitant]
  4. NOVOLET [Concomitant]
  5. SINTROM [Concomitant]

REACTIONS (2)
  - DISSEMINATED TUBERCULOSIS [None]
  - PLEURAL EFFUSION [None]
